FAERS Safety Report 5302753-7 (Version None)
Quarter: 2007Q2

REPORT INFORMATION
  Report Type: 
  Country: None (occurrence: None)
  Receive Date: 20070419
  Receipt Date: 20070411
  Transmission Date: 20071010
  Serious: Yes (Other)
  Sender: FDA-Public Use
  Company Number: BR-PFIZER INC-2007029966

PATIENT
  Sex: Male

DRUGS (4)
  1. XALATAN [Suspect]
     Indication: GLAUCOMA
     Route: 047
     Dates: start: 20040501, end: 20070101
  2. INSULIN [Concomitant]
  3. MODURETIC 5-50 [Concomitant]
     Route: 048
  4. LOSARTAN POTASSIUM [Concomitant]

REACTIONS (4)
  - BLEPHARITIS [None]
  - CONJUNCTIVITIS [None]
  - EYELIDS PRURITUS [None]
  - SKIN EXFOLIATION [None]
